FAERS Safety Report 9565786 (Version 2)
Quarter: 2013Q4

REPORT INFORMATION
  Report Type: Spontaneous
  Country: GB (occurrence: GB)
  Receive Date: 20130930
  Receipt Date: 20131011
  Transmission Date: 20140711
  Serious: Yes (Other)
  Sender: FDA-Public Use
  Company Number: GB-VIIV HEALTHCARE LIMITED-B0924521A

PATIENT
  Age: 59 Year
  Sex: Female

DRUGS (2)
  1. COMBIVIR [Suspect]
     Indication: HIV INFECTION
     Route: 065
     Dates: start: 1999
  2. NEVIRAPINE [Suspect]
     Indication: HIV INFECTION
     Route: 065
     Dates: start: 1999

REACTIONS (3)
  - Stevens-Johnson syndrome [Recovered/Resolved]
  - Rash [Recovered/Resolved]
  - Post inflammatory pigmentation change [Not Recovered/Not Resolved]
